FAERS Safety Report 6643447-5 (Version None)
Quarter: 2010Q1

REPORT INFORMATION
  Report Type: 
  Country: None (occurrence: None)
  Receive Date: 20100319
  Receipt Date: 20100315
  Transmission Date: 20100710
  Serious: Yes (Death, Hospitalization)
  Sender: FDA-Public Use
  Company Number: TW-MERCK-1003TWN00010

PATIENT
  Age: 72 Year
  Sex: Male

DRUGS (3)
  1. FOSAMAX PLUS D [Suspect]
     Indication: OSTEOPOROSIS
     Route: 048
     Dates: start: 20090930, end: 20091110
  2. ETORICOXIB [Concomitant]
     Indication: BACK PAIN
     Route: 048
     Dates: start: 20091111, end: 20091116
  3. ACETAMINOPHEN AND TRAMADOL HYDROCHLORIDE [Concomitant]
     Indication: BACK PAIN
     Route: 048
     Dates: start: 20090930, end: 20091110

REACTIONS (2)
  - LUNG NEOPLASM MALIGNANT [None]
  - METASTASES TO BONE [None]
